FAERS Safety Report 10866228 (Version 1)
Quarter: 2015Q1

REPORT INFORMATION
  Report Type: Spontaneous
  Country: IN (occurrence: None)
  Receive Date: 20150220
  Receipt Date: 20150220
  Transmission Date: 20150721
  Serious: Yes (Life-Threatening, Other)
  Sender: FDA-Public Use
  Company Number: 2015COR00029

PATIENT
  Age: 22 Year
  Sex: Female
  Weight: 48 kg

DRUGS (2)
  1. ONDANSETRON (ONDANSETRON) INJECTION [Suspect]
     Active Substance: ONDANSETRON
     Indication: PREMEDICATION
     Route: 042
  2. GLYCOPYRROLATE. [Suspect]
     Active Substance: GLYCOPYRROLATE
     Indication: PREMEDICATION
     Route: 042

REACTIONS (4)
  - Sinus tachycardia [None]
  - Loss of consciousness [None]
  - Respiratory arrest [None]
  - Drug interaction [None]
